FAERS Safety Report 5517632-X (Version None)
Quarter: 2007Q4

REPORT INFORMATION
  Report Type: 
  Country: None (occurrence: None)
  Receive Date: 20071114
  Receipt Date: 20071108
  Transmission Date: 20080405
  Serious: Yes (Other)
  Sender: FDA-Public Use
  Company Number: US-ROXANE LABORATORIES, INC-2007-BP-24223RO

PATIENT
  Age: 63 Year
  Sex: Male

DRUGS (9)
  1. MEGESTROL ACETATE [Suspect]
     Indication: DECREASED APPETITE
  2. ENOXAPARIN SODIUM [Suspect]
  3. CARBOPLATIN [Concomitant]
     Indication: CHEMOTHERAPY
  4. PACLITAXEL [Concomitant]
     Indication: CHEMOTHERAPY
  5. DOCETAXEL [Concomitant]
     Indication: CHEMOTHERAPY
  6. IMEXON [Concomitant]
     Indication: CHEMOTHERAPY
  7. PEMETREXED [Concomitant]
     Indication: CHEMOTHERAPY
  8. DEXAMETHASONE [Concomitant]
  9. TESTOSTERONE [Concomitant]
     Route: 061

REACTIONS (5)
  - ADRENAL INSUFFICIENCY [None]
  - DIZZINESS [None]
  - FATIGUE [None]
  - HAEMOGLOBIN DECREASED [None]
  - HYPOGONADISM [None]
